FAERS Safety Report 4528633-2 (Version None)
Quarter: 2004Q4

REPORT INFORMATION
  Report Type: 
  Country: None (occurrence: None)
  Receive Date: 20041216
  Receipt Date: 20041004
  Transmission Date: 20050328
  Serious: No
  Sender: FDA-Public Use
  Company Number: DE-MERCK-0410DEU00093

PATIENT
  Age: 52 Year
  Sex: Female
  Weight: 56 kg

DRUGS (11)
  1. VIOXX [Suspect]
     Indication: NECK INJURY
     Route: 048
     Dates: start: 20030601
  2. VIOXX [Suspect]
     Route: 048
     Dates: start: 20030601
  3. VIOXX [Suspect]
     Route: 048
     Dates: start: 20040304
  4. VIOXX [Suspect]
     Route: 048
     Dates: start: 20040902
  5. VIOXX [Suspect]
     Indication: CONTUSION
     Route: 048
     Dates: start: 20030601
  6. VIOXX [Suspect]
     Route: 048
     Dates: start: 20030601
  7. VIOXX [Suspect]
     Route: 048
     Dates: start: 20040304
  8. VIOXX [Suspect]
     Route: 048
     Dates: start: 20040902
  9. LEVOTHYROXINE SODIUM [Concomitant]
     Route: 065
  10. NALOXONE HYDROCHLORIDE AND TILIDINE HYDROCHLORIDE [Concomitant]
     Route: 065
  11. TOLPERISONE HYDROCHLORIDE [Concomitant]
     Route: 065

REACTIONS (10)
  - ARRHYTHMIA [None]
  - CONSTIPATION [None]
  - DEPRESSION [None]
  - DIZZINESS [None]
  - FATIGUE [None]
  - HYPERTENSION [None]
  - HYPERTHYROIDISM [None]
  - PALPITATIONS [None]
  - TEMPERATURE INTOLERANCE [None]
  - TINNITUS [None]
